FAERS Safety Report 6807344-4 (Version None)
Quarter: 2010Q2

REPORT INFORMATION
  Report Type: 
  Country: None (occurrence: None)
  Receive Date: 20100629
  Receipt Date: 20080827
  Transmission Date: 20101027
  Serious: No
  Sender: FDA-Public Use
  Company Number: US-PFIZER INC-2008072962

PATIENT
  Sex: Male

DRUGS (1)
  1. XANAX [Suspect]
     Indication: DRUG ABUSE
     Dates: start: 20080823, end: 20080824

REACTIONS (4)
  - CONFUSIONAL STATE [None]
  - INCORRECT DOSE ADMINISTERED [None]
  - MUSCLE TIGHTNESS [None]
  - WITHDRAWAL SYNDROME [None]
